FAERS Safety Report 12473279 (Version 2)
Quarter: 2016Q3

REPORT INFORMATION
  Report Type: Spontaneous
  Country: DE (occurrence: DE)
  Receive Date: 20160616
  Receipt Date: 20160714
  Transmission Date: 20161109
  Serious: Yes (Other)
  Sender: FDA-Public Use
  Company Number: DE-TEVA-667180GER

PATIENT
  Age: 60 Year
  Sex: Male

DRUGS (1)
  1. GABAPENTIN-RATIOPHARM 100 MG HARTKAPSELN [Suspect]
     Active Substance: GABAPENTIN
     Indication: NEURALGIA
     Dosage: 200 MILLIGRAM DAILY; DOSAGE: 2-0-0; INTAKE FOR 8 MONTHS
     Route: 048
     Dates: start: 2015

REACTIONS (1)
  - Eye haemorrhage [Recovered/Resolved]

NARRATIVE: CASE EVENT DATE: 2016
